FAERS Safety Report 6367912-3 (Version None)
Quarter: 2009Q3

REPORT INFORMATION
  Report Type: 
  Country: None (occurrence: None)
  Receive Date: 20090922
  Receipt Date: 20090910
  Transmission Date: 20100115
  Serious: Yes (Other)
  Sender: FDA-Public Use
  Company Number: GR-JNJFOC-20090903811

PATIENT
  Age: 61 Year
  Sex: Male

DRUGS (3)
  1. INFLIXIMAB [Suspect]
     Indication: COLITIS ULCERATIVE
     Dosage: AT WEEKS 0, 2, 6, AND EVERY 8 WEEKS THEREAFTER
     Route: 042
  2. AZATHIOPRINE [Concomitant]
     Route: 048
  3. GLUCOCORTICOID [Concomitant]

REACTIONS (6)
  - FLUSHING [None]
  - HEADACHE [None]
  - INFUSION RELATED REACTION [None]
  - NAUSEA [None]
  - ROSACEA [None]
  - TYPE IV HYPERSENSITIVITY REACTION [None]
